FAERS Safety Report 13186183 (Version 2)
Quarter: 2017Q1

REPORT INFORMATION
  Report Type: Spontaneous
  Country: IN (occurrence: IN)
  Receive Date: 20170204
  Receipt Date: 20170228
  Transmission Date: 20170428
  Serious: Yes (Other)
  Sender: FDA-Public Use
  Company Number: IN-ACCORD-047912

PATIENT
  Age: 45 Year
  Sex: Female

DRUGS (1)
  1. CLOZAPINE. [Suspect]
     Active Substance: CLOZAPINE
     Indication: SCHIZOPHRENIA
     Dosage: 100 MG IN THE MORNING AND 200?MG AT BEDTIME OVER 4-6 WEEKS
     Route: 048

REACTIONS (2)
  - Insomnia [Unknown]
  - Restless legs syndrome [Recovering/Resolving]
